FAERS Safety Report 6671654-4 (Version None)
Quarter: 2010Q2

REPORT INFORMATION
  Report Type: 
  Country: None (occurrence: None)
  Receive Date: 20100406
  Receipt Date: 20100406
  Transmission Date: 20101027
  Serious: Yes (Other)
  Sender: FDA-Public Use
  Company Number: None

PATIENT
  Sex: Male

DRUGS (1)
  1. CARBAMAZEPINE [Suspect]
     Indication: EPILEPSY
     Dosage: 600MG TWICE DAILY PO
     Route: 048
     Dates: start: 20090801, end: 20090901

REACTIONS (2)
  - NAUSEA [None]
  - PRODUCT SUBSTITUTION ISSUE [None]
